FAERS Safety Report 19205706 (Version 1)
Quarter: 2021Q2

REPORT INFORMATION
  Report Type: Spontaneous
  Country: US (occurrence: US)
  Receive Date: 20210503
  Receipt Date: 20210503
  Transmission Date: 20210717
  Serious: No
  Sender: FDA-Public Use
  Company Number: US-FARMAPROD-202102-0246

PATIENT
  Sex: Female

DRUGS (15)
  1. TYLENOL [Concomitant]
     Active Substance: ACETAMINOPHEN
  2. CRANBERRY. [Concomitant]
     Active Substance: CRANBERRY
  3. OXERVATE [Suspect]
     Active Substance: CENEGERMIN-BKBJ
     Indication: NEUROTROPHIC KERATOPATHY
     Route: 047
     Dates: start: 20210127
  4. OXERVATE [Suspect]
     Active Substance: CENEGERMIN-BKBJ
     Indication: HYPOAESTHESIA EYE
  5. MULTIVITAMIN [Concomitant]
     Active Substance: VITAMINS
  6. PROLIA [Concomitant]
     Active Substance: DENOSUMAB
  7. FISH OIL [Concomitant]
     Active Substance: FISH OIL
  8. VITAMIN D3 [Concomitant]
     Active Substance: CHOLECALCIFEROL
  9. COENZYME Q?10 [Concomitant]
  10. CALCIUM + D3 [Concomitant]
     Active Substance: CALCIUM\CHOLECALCIFEROL
  11. ALLEGRA ALLERGY [Concomitant]
     Active Substance: FEXOFENADINE HYDROCHLORIDE
  12. FLAXSEED [Concomitant]
     Active Substance: FLAX SEED
  13. BIOTIN [Concomitant]
     Active Substance: BIOTIN
  14. MOXIFLOXACIN. [Concomitant]
     Active Substance: MOXIFLOXACIN
  15. VALACYCLOVIR [Concomitant]
     Active Substance: VALACYCLOVIR HYDROCHLORIDE

REACTIONS (1)
  - Eye pain [Unknown]
